FAERS Safety Report 23505420 (Version 3)
Quarter: 2024Q1

REPORT INFORMATION
  Report Type: Spontaneous
  Country: US (occurrence: US)
  Receive Date: 20240209
  Receipt Date: 20240221
  Transmission Date: 20240410
  Serious: No
  Sender: FDA-Public Use
  Company Number: US-JNJFOC-20240169241

PATIENT
  Weight: 74.91 kg

DRUGS (2)
  1. STELARA [Suspect]
     Active Substance: USTEKINUMAB
     Indication: Colitis ulcerative
     Route: 058
     Dates: start: 20240124
  2. STELARA [Suspect]
     Active Substance: USTEKINUMAB

REACTIONS (7)
  - Anxiety [Unknown]
  - Needle issue [Unknown]
  - Product administration error [Unknown]
  - Injection site haemorrhage [Unknown]
  - Off label use [Unknown]
  - Insomnia [Unknown]
  - Haemorrhage [Unknown]
